FAERS Safety Report 15573533 (Version 2)
Quarter: 2023Q2

REPORT INFORMATION
  Report Type: Spontaneous
  Country: CA (occurrence: CA)
  Receive Date: 20181101
  Receipt Date: 20230605
  Transmission Date: 20230721
  Serious: Yes (Hospitalization)
  Sender: FDA-Public Use
  Company Number: CA-TEVA-2018-CA-968470

PATIENT
  Age: 37 Year
  Sex: Female

DRUGS (15)
  1. ALBUTEROL SULFATE [Suspect]
     Active Substance: ALBUTEROL SULFATE
     Indication: Product used for unknown indication
     Route: 055
  2. ALBUTEROL SULFATE [Suspect]
     Active Substance: ALBUTEROL SULFATE
     Dosage: 2 DOSAGE FORMS DAILY;
     Route: 055
  3. ALBUTEROL SULFATE [Suspect]
     Active Substance: ALBUTEROL SULFATE
     Dosage: 2 DOSAGE FORMS DAILY;
     Route: 065
  4. ALBUTEROL SULFATE [Suspect]
     Active Substance: ALBUTEROL SULFATE
     Route: 055
  5. ALVESCO [Suspect]
     Active Substance: CICLESONIDE
     Indication: Product used for unknown indication
     Route: 065
  6. ALVESCO [Suspect]
     Active Substance: CICLESONIDE
     Dosage: 200 MILLIGRAM DAILY;
     Route: 055
  7. ALVESCO [Suspect]
     Active Substance: CICLESONIDE
     Dosage: 200 MILLIGRAM DAILY;
     Route: 055
  8. ATROVENT [Suspect]
     Active Substance: IPRATROPIUM BROMIDE
     Indication: Product used for unknown indication
     Dosage: 4 DOSAGE FORMS DAILY;
     Route: 055
  9. ATROVENT [Suspect]
     Active Substance: IPRATROPIUM BROMIDE
     Route: 055
  10. BUDESONIDE\FORMOTEROL FUMARATE [Suspect]
     Active Substance: BUDESONIDE\FORMOTEROL FUMARATE
     Indication: Product used for unknown indication
     Dosage: 8 DOSAGE FORMS DAILY;
     Route: 055
  11. TIOTROPIUM [Suspect]
     Active Substance: TIOTROPIUM
     Indication: Product used for unknown indication
     Dosage: 4 DOSAGE FORMS DAILY;
     Route: 055
  12. TIOTROPIUM [Suspect]
     Active Substance: TIOTROPIUM
     Dosage: 4 DOSAGE FORMS DAILY;
     Route: 065
  13. SYMBICORT [Suspect]
     Active Substance: BUDESONIDE\FORMOTEROL FUMARATE DIHYDRATE
     Indication: Product used for unknown indication
     Dosage: 8 DOSAGE FORMS DAILY;
     Route: 055
  14. SYMBICORT [Suspect]
     Active Substance: BUDESONIDE\FORMOTEROL FUMARATE DIHYDRATE
     Route: 055
  15. SPIRIVA [Suspect]
     Active Substance: TIOTROPIUM BROMIDE MONOHYDRATE
     Indication: Product used for unknown indication
     Route: 055

REACTIONS (9)
  - Asthma [Unknown]
  - Cough [Unknown]
  - Dyspepsia [Unknown]
  - Dyspnoea [Unknown]
  - Middle insomnia [Unknown]
  - Obstructive airways disorder [Unknown]
  - Productive cough [Unknown]
  - Wheezing [Unknown]
  - Full blood count abnormal [Unknown]
